FAERS Safety Report 6026594-0 (Version None)
Quarter: 2008Q4

REPORT INFORMATION
  Report Type: 
  Country: None (occurrence: None)
  Receive Date: 20081231
  Receipt Date: 20081223
  Transmission Date: 20090506
  Serious: Yes (Life-Threatening, Hospitalization)
  Sender: FDA-Public Use
  Company Number: 2008AL012424

PATIENT
  Age: 38 Year
  Sex: Male

DRUGS (2)
  1. ALPRAZOLAM [Suspect]
     Indication: ANXIETY
     Dosage: 6 MG; QD; PO
     Route: 048
     Dates: start: 19980101, end: 20081212
  2. ALPRAZOLAM [Suspect]
     Indication: PANIC DISORDER
     Dosage: 6 MG; QD; PO
     Route: 048
     Dates: start: 19980101, end: 20081212

REACTIONS (3)
  - ANXIETY [None]
  - CONVULSION [None]
  - INAPPROPRIATE SCHEDULE OF DRUG ADMINISTRATION [None]
